FAERS Safety Report 25712529 (Version 1)
Quarter: 2025Q3

REPORT INFORMATION
  Report Type: Spontaneous
  Country: GB (occurrence: GB)
  Receive Date: 20250821
  Receipt Date: 20250821
  Transmission Date: 20251021
  Serious: Yes (Hospitalization, Other)
  Sender: MYLAN
  Company Number: GB-MYLANLABS-2025M1071138

PATIENT
  Sex: Male

DRUGS (8)
  1. CLOZARIL [Suspect]
     Active Substance: CLOZAPINE
     Indication: Schizophrenia
     Dosage: BID (100MG AM 200MG PM)
     Dates: start: 20100304
  2. CLOZARIL [Suspect]
     Active Substance: CLOZAPINE
     Dosage: BID (100MG AM 200MG PM)
     Dates: start: 20100304
  3. CLOZARIL [Suspect]
     Active Substance: CLOZAPINE
     Dosage: BID (100MG AM 200MG PM)
     Route: 048
     Dates: start: 20100304
  4. CLOZARIL [Suspect]
     Active Substance: CLOZAPINE
     Dosage: BID (100MG AM 200MG PM)
     Route: 048
     Dates: start: 20100304
  5. CLOZARIL [Suspect]
     Active Substance: CLOZAPINE
  6. CLOZARIL [Suspect]
     Active Substance: CLOZAPINE
  7. CLOZARIL [Suspect]
     Active Substance: CLOZAPINE
     Route: 048
  8. CLOZARIL [Suspect]
     Active Substance: CLOZAPINE
     Route: 048

REACTIONS (6)
  - Confusional state [Unknown]
  - Delirium [Unknown]
  - Dementia [Unknown]
  - Constipation [Unknown]
  - Urinary tract infection [Unknown]
  - Product dose omission in error [Unknown]
